FAERS Safety Report 9572576 (Version 2)
Quarter: 2013Q4

REPORT INFORMATION
  Report Type: Report from Study
  Country: US (occurrence: US)
  Receive Date: 20131001
  Receipt Date: 20131011
  Transmission Date: 20140711
  Serious: Yes (Hospitalization)
  Sender: FDA-Public Use
  Company Number: US-ABBVIE-13P-163-1150797-00

PATIENT
  Age: 41 Year
  Sex: Female

DRUGS (5)
  1. HUMIRA [Suspect]
     Indication: CROHN^S DISEASE
     Dates: start: 201305
  2. GABAPENTIN [Concomitant]
     Indication: PAIN
  3. GABAPENTIN [Concomitant]
     Indication: INSOMNIA
  4. PROTONIX [Concomitant]
     Indication: GASTROOESOPHAGEAL REFLUX DISEASE
  5. METOPROLOL [Concomitant]
     Indication: HYPERTENSION
     Dosage: 1 TAB QAM, 1 TAB QPM

REACTIONS (11)
  - Conjunctivitis [Recovered/Resolved]
  - Crohn^s disease [Recovering/Resolving]
  - Cellulitis [Recovered/Resolved]
  - Urinary tract infection [Unknown]
  - Pleural effusion [Unknown]
  - Constipation [Unknown]
  - Diarrhoea [Unknown]
  - Large intestinal stenosis [Not Recovered/Not Resolved]
  - Gastrointestinal disorder [Not Recovered/Not Resolved]
  - Haemorrhoids [Not Recovered/Not Resolved]
  - Large intestinal stenosis [Not Recovered/Not Resolved]
